FAERS Safety Report 4364567-4 (Version None)
Quarter: 2004Q2

REPORT INFORMATION
  Report Type: 
  Country: None (occurrence: None)
  Receive Date: 20040525
  Receipt Date: 20040520
  Transmission Date: 20050107
  Serious: Yes (Life-Threatening)
  Sender: FDA-Public Use
  Company Number: JP-MERCK-0405USA01628

PATIENT
  Age: 65 Year
  Sex: Female

DRUGS (1)
  1. STROMECTOL [Suspect]
     Indication: STRONGYLOIDIASIS
     Route: 048
     Dates: start: 20040430, end: 20040430

REACTIONS (1)
  - BLOOD ALKALINE PHOSPHATASE INCREASED [None]
